FAERS Safety Report 12363505 (Version 1)
Quarter: 2016Q2

REPORT INFORMATION
  Report Type: Spontaneous
  Country: US (occurrence: US)
  Receive Date: 20160512
  Receipt Date: 20160512
  Transmission Date: 20160815
  Serious: No
  Sender: FDA-Public Use
  Company Number: ADR-2015-00493

PATIENT
  Age: 62 Year
  Sex: Female

DRUGS (9)
  1. BUPIVACAINE. [Suspect]
     Active Substance: BUPIVACAINE
     Route: 037
  2. FENTANYL. [Suspect]
     Active Substance: FENTANYL
     Dosage: 229.14 MCG/DAY
     Route: 037
  3. MORPHINE [Suspect]
     Active Substance: MORPHINE
     Route: 037
  4. CLONIDINE. [Suspect]
     Active Substance: CLONIDINE
     Route: 037
  5. MARCAINE [Suspect]
     Active Substance: BUPIVACAINE HYDROCHLORIDE
     Route: 037
  6. HYDROMORPHONE [Suspect]
     Active Substance: HYDROMORPHONE
     Route: 037
  7. HYDROMORPONE [Suspect]
     Active Substance: HYDROMORPHONE
     Route: 048
  8. BACLOFEN. [Suspect]
     Active Substance: BACLOFEN
     Route: 037
  9. MUSCLE RELAXER [Suspect]
     Active Substance: UNSPECIFIED INGREDIENT
     Route: 048

REACTIONS (11)
  - Anxiety [Unknown]
  - Paraesthesia [Unknown]
  - No therapeutic response [Unknown]
  - Dyspnoea [Unknown]
  - Insomnia [Unknown]
  - Performance status decreased [Unknown]
  - Breakthrough pain [Unknown]
  - Burning sensation [Unknown]
  - Adverse drug reaction [Unknown]
  - Pain [Unknown]
  - Muscle swelling [Unknown]

NARRATIVE: CASE EVENT DATE: 20141124
